FAERS Safety Report 6741313-8 (Version None)
Quarter: 2010Q2

REPORT INFORMATION
  Report Type: 
  Country: None (occurrence: None)
  Receive Date: 20100526
  Receipt Date: 20100518
  Transmission Date: 20101027
  Serious: Yes (Hospitalization, Disabling, Other)
  Sender: FDA-Public Use
  Company Number: AU-PFIZER INC-2009286724

PATIENT
  Age: 70 Year
  Sex: Male
  Weight: 83 kg

DRUGS (9)
  1. SUTENT [Suspect]
     Indication: METASTATIC RENAL CELL CARCINOMA
     Dosage: 50 MG, 1X/DAY, 4 WEEKS ON, 2 WEEKS OFF CYCLE
     Route: 048
     Dates: start: 20090709, end: 20100415
  2. AVAPRO [Concomitant]
     Indication: HYPERTENSION
     Dosage: 150 MG, 1X/DAY
     Route: 048
  3. LEVOTHYROXINE SODIUM [Concomitant]
     Indication: HYPOTHYROIDISM
     Dosage: 150 UG, 1X/DAY
     Route: 048
  4. FISH OIL [Concomitant]
     Dosage: 9000 MG, 1X/DAY
  5. VITAMIN C [Concomitant]
     Dosage: 1000 MG, 1X/DAY
  6. GARLIC [Concomitant]
     Dosage: 1000 MG, 1X/DAY
  7. VITAMIN E [Concomitant]
     Dosage: 500 MG, 1X/DAY
  8. CENTRUM A TO ZINC [Concomitant]
     Indication: MEDICAL DIET
  9. ENSURE [Concomitant]
     Indication: MEDICAL DIET

REACTIONS (13)
  - AGEUSIA [None]
  - ASTHENIA [None]
  - CONSTIPATION [None]
  - DECREASED APPETITE [None]
  - GASTROINTESTINAL PAIN [None]
  - GENITAL CANDIDIASIS [None]
  - HEADACHE [None]
  - HYPERTENSION [None]
  - NAUSEA [None]
  - ORAL CANDIDIASIS [None]
  - ORAL PAIN [None]
  - PALMAR-PLANTAR ERYTHRODYSAESTHESIA SYNDROME [None]
  - VOMITING [None]
